FAERS Safety Report 7519060-4 (Version None)
Quarter: 2011Q2

REPORT INFORMATION
  Report Type: 
  Country: None (occurrence: None)
  Receive Date: 20110602
  Receipt Date: 20110520
  Transmission Date: 20111010
  Serious: Yes (Hospitalization, Other)
  Sender: FDA-Public Use
  Company Number: JP-ROCHE-730715

PATIENT
  Sex: Male
  Weight: 71 kg

DRUGS (13)
  1. AVASTIN [Suspect]
     Route: 041
     Dates: start: 20100712, end: 20100712
  2. LOXONIN [Concomitant]
     Dosage: DOSAGE IS UNCERTAIN
     Route: 048
     Dates: start: 20100501
  3. PANVITAN [Concomitant]
     Dosage: DOSAGE IS UNCERTAIN
     Route: 048
     Dates: start: 20100601
  4. MAGMITT [Concomitant]
     Dosage: DOSAGE IS UNCERTAIN
     Route: 048
     Dates: start: 20100615
  5. AVASTIN [Suspect]
     Indication: LUNG ADENOCARCINOMA
     Route: 041
     Dates: start: 20100615, end: 20100615
  6. ANALGESIC OR NSAID [Concomitant]
     Dosage: NOTE: DOSAGE IS UNCERTAIN; DRUG NAME REPORTED :ANTIPYRETICS, ANALGESICS AND ANTI-INFLAMMATORY AGENTS
     Route: 065
  7. NORVASC [Concomitant]
     Dosage: DOSAGE IS UNCERTAIN
     Route: 048
     Dates: start: 20100601
  8. AVASTIN [Suspect]
     Route: 041
     Dates: start: 20100827, end: 20100924
  9. AVASTIN [Suspect]
     Dosage: DOSAGE IS UNCERTAIN
     Route: 041
     Dates: start: 20101013
  10. CISPLATIN [Concomitant]
     Dosage: NOTE: DOSAGE IS UNCERTAIN.
     Route: 041
     Dates: start: 20100615, end: 20100924
  11. ALIMTA [Concomitant]
     Dosage: DOSAGE IS UNCERTAIN
     Route: 041
     Dates: start: 20100615, end: 20100924
  12. AVASTIN [Suspect]
     Route: 041
     Dates: start: 20100805, end: 20100805
  13. OXYCONTIN [Concomitant]
     Dosage: DOSAGE IS UNCERTAIN
     Route: 048
     Dates: start: 20100501

REACTIONS (6)
  - CONSTIPATION [None]
  - DECREASED APPETITE [None]
  - DISSEMINATED INTRAVASCULAR COAGULATION [None]
  - RENAL IMPAIRMENT [None]
  - DEHYDRATION [None]
  - ANAL ABSCESS [None]
